FAERS Safety Report 12191535 (Version 2)
Quarter: 2016Q1

REPORT INFORMATION
  Report Type: Spontaneous
  Country: CA (occurrence: CA)
  Receive Date: 20160318
  Receipt Date: 20160330
  Transmission Date: 20160526
  Serious: Yes (Hospitalization, Other)
  Sender: FDA-Public Use
  Company Number: CA-WATSON-2016-05675

PATIENT
  Age: 62 Year
  Sex: Male

DRUGS (2)
  1. SULFAMETHOXAZOLE-TRIMETHOPRIM (SMZ) [Suspect]
     Active Substance: SULFAMETHOXAZOLE\TRIMETHOPRIM
     Indication: DIVERTICULITIS
     Dosage: UNK
     Route: 048
  2. METRONIDAZOLE (UNKNOWN) [Suspect]
     Active Substance: METRONIDAZOLE
     Indication: DIVERTICULITIS
     Dosage: UNK
     Route: 048

REACTIONS (2)
  - Pseudomembranous colitis [Unknown]
  - Clostridium difficile infection [Unknown]
